FAERS Safety Report 16370845 (Version 1)
Quarter: 2019Q2

REPORT INFORMATION
  Report Type: Spontaneous
  Country: US (occurrence: US)
  Receive Date: 20190423
  Receipt Date: 20190423
  Transmission Date: 20190711
  Serious: Yes (Hospitalization)
  Sender: FDA-Public Use
  Company Number: None

PATIENT
  Age: 35 Year
  Sex: Female

DRUGS (1)
  1. NEULASTA [Suspect]
     Active Substance: PEGFILGRASTIM
     Indication: NEOPLASM MALIGNANT
     Dosage: ?          OTHER DOSE:6MG/0.6ML;OTHER FREQUENCY:QD DAY 6;?
     Route: 058
     Dates: start: 20190402

REACTIONS (2)
  - Dehydration [None]
  - Pyrexia [None]
